FAERS Safety Report 8988894 (Version 2)
Quarter: 2013Q1

REPORT INFORMATION
  Report Type: Spontaneous
  Country: US (occurrence: None)
  Receive Date: 20121220
  Receipt Date: 20130108
  Transmission Date: 20140127
  Serious: Yes (Hospitalization, Other)
  Sender: FDA-Public Use
  Company Number: USA/USA/12/0027120

PATIENT
  Age: 14 Year
  Sex: Male

DRUGS (2)
  1. ZIPRASIDONE [Suspect]
     Indication: PRODUCT USED FOR UNKNOWN INDICATION
     Route: 048
  2. SERTRALINE HYDROCHLORIDE (SERTRALINE HYDROCHLORIDE) [Concomitant]

REACTIONS (6)
  - Muscle rigidity [None]
  - Dystonia [None]
  - Extrapyramidal disorder [None]
  - Dizziness [None]
  - Swollen tongue [None]
  - Trismus [None]
